FAERS Safety Report 14214214 (Version 2)
Quarter: 2017Q4

REPORT INFORMATION
  Report Type: Report from Study
  Country: MX (occurrence: MX)
  Receive Date: 20171122
  Receipt Date: 20171206
  Transmission Date: 20180321
  Serious: Yes (Hospitalization, Other)
  Sender: FDA-Public Use
  Company Number: PHHY2017MX171271

PATIENT
  Age: 80 Year
  Sex: Female

DRUGS (1)
  1. CO-DIOVAN [Suspect]
     Active Substance: HYDROCHLOROTHIAZIDE\VALSARTAN
     Indication: HYPERTENSION
     Dosage: 1 DF (HYDROCHLOROTHIAZIDE 12.5 MG, VALSARTAN 160 MG), QD
     Route: 048

REACTIONS (3)
  - Myocardial infarction [Recovered/Resolved]
  - Memory impairment [Unknown]
  - Coronary vein stenosis [Recovered/Resolved]

NARRATIVE: CASE EVENT DATE: 20171007
